FAERS Safety Report 6212424-0 (Version None)
Quarter: 2009Q2

REPORT INFORMATION
  Report Type: 
  Country: None (occurrence: None)
  Receive Date: 20090601
  Receipt Date: 20090601
  Transmission Date: 20091009
  Serious: Yes (Other)
  Sender: FDA-Public Use
  Company Number: None

PATIENT
  Sex: Female

DRUGS (2)
  1. LEVETIRACETAM [Suspect]
     Indication: EPILEPSY
     Dosage: 2000 MG QHS
     Dates: start: 20090201
  2. LAMOTRIGINE [Suspect]

REACTIONS (2)
  - DIZZINESS [None]
  - VOMITING [None]
